FAERS Safety Report 5371171-8 (Version None)
Quarter: 2007Q2

REPORT INFORMATION
  Report Type: 
  Country: None (occurrence: None)
  Receive Date: 20070615
  Receipt Date: 20070219
  Transmission Date: 20071010
  Serious: Yes (Other)
  Sender: FDA-Public Use
  Company Number: 200711094US

PATIENT
  Age: 58 Year
  Sex: Male

DRUGS (10)
  1. LANTUS [Suspect]
     Indication: DIABETES MELLITUS NON-INSULIN-DEPENDENT
     Dosage: 30-34 U
  2. LANTUS [Suspect]
     Indication: DIABETES MELLITUS NON-INSULIN-DEPENDENT
     Dosage: 34 U
  3. INSULIN HUMAN REGULAR [Concomitant]
  4. GLIPIZIDE [Concomitant]
  5. ZETIA [Concomitant]
  6. VALSARTAN (DIOVANE) [Concomitant]
  7. ACETYLSALICYLIC ACID SRT [Concomitant]
  8. PARACETAMOL, DEXTROPROXYPHENE NAPSILATE (DARVOCET-N) [Concomitant]
  9. DIAZEPAM [Concomitant]
  10. ROSUVASTATIN (CRESTOR /01588601/) [Concomitant]

REACTIONS (4)
  - DRUG INEFFECTIVE [None]
  - HYPERGLYCAEMIA [None]
  - HYPOGLYCAEMIA [None]
  - TREATMENT NONCOMPLIANCE [None]
